FAERS Safety Report 9781655 (Version 1)
Quarter: 2013Q4

REPORT INFORMATION
  Report Type: Spontaneous
  Country: TR (occurrence: TR)
  Receive Date: 20131224
  Receipt Date: 20131224
  Transmission Date: 20140711
  Serious: Yes (Other)
  Sender: FDA-Public Use
  Company Number: PHHY2013TR150178

PATIENT
  Age: 24 Year
  Sex: Male

DRUGS (9)
  1. OXYCODONE HYDROCHLORIDE [Suspect]
     Indication: OSTEOCHONDROSIS
     Dosage: 30 MG, UNK
  2. OXYCODONE HYDROCHLORIDE [Suspect]
     Dosage: 80 MG, UNK
  3. DIAZEPAM [Suspect]
     Indication: OSTEOCHONDROSIS
     Dosage: 20 MG, UNK
  4. PARACETAMOL [Suspect]
     Indication: OSTEOCHONDROSIS
  5. TRAMADOL [Suspect]
     Indication: OSTEOCHONDROSIS
  6. SUBOXONE [Concomitant]
     Indication: BACK PAIN
  7. MORPHINE [Concomitant]
  8. LSD [Concomitant]
  9. METHAMPHETAMINE [Concomitant]

REACTIONS (2)
  - Intentional drug misuse [Unknown]
  - Drug ineffective [Unknown]
